FAERS Safety Report 5256774-3 (Version None)
Quarter: 2007Q1

REPORT INFORMATION
  Report Type: 
  Country: None (occurrence: None)
  Receive Date: 20070306
  Receipt Date: 20070224
  Transmission Date: 20070707
  Serious: Yes (Other)
  Sender: FDA-Public Use
  Company Number: US-PFIZER INC-2007016651

PATIENT
  Age: 90 Year

DRUGS (1)
  1. ZOLOFT [Suspect]

REACTIONS (3)
  - CONFUSIONAL STATE [None]
  - POST PROCEDURAL COMPLICATION [None]
  - SPINAL OPERATION [None]
